FAERS Safety Report 6160283-7 (Version None)
Quarter: 2009Q2

REPORT INFORMATION
  Report Type: 
  Country: None (occurrence: None)
  Receive Date: 20090416
  Receipt Date: 20090413
  Transmission Date: 20091009
  Serious: Yes (Death)
  Sender: FDA-Public Use
  Company Number: 2008SP025334

PATIENT
  Age: 73 Year
  Sex: Male

DRUGS (4)
  1. TEMODAR [Suspect]
     Indication: GLIOBLASTOMA
     Dosage: 160 MG; QD; PO
     Route: 048
  2. KEPPRA [Concomitant]
  3. COMPAZINE [Concomitant]
  4. PEPCID [Concomitant]

REACTIONS (1)
  - DEATH [None]
